FAERS Safety Report 10198825 (Version 1)
Quarter: 2014Q2

REPORT INFORMATION
  Report Type: Spontaneous
  Country: US (occurrence: US)
  Receive Date: 20140527
  Receipt Date: 20140527
  Transmission Date: 20141212
  Serious: No
  Sender: FDA-Public Use
  Company Number: US-NOVEN-13US007725

PATIENT
  Sex: 0

DRUGS (1)
  1. DAYTRANA [Suspect]
     Indication: PRODUCT USED FOR UNKNOWN INDICATION
     Dosage: 20 MG, QD X 9 HR
     Route: 062

REACTIONS (2)
  - Application site erythema [Not Recovered/Not Resolved]
  - Product quality issue [Not Recovered/Not Resolved]
